FAERS Safety Report 24685347 (Version 1)
Quarter: 2024Q4

REPORT INFORMATION
  Report Type: Spontaneous
  Country: US (occurrence: None)
  Receive Date: 20241127
  Receipt Date: 20241127
  Transmission Date: 20250115
  Serious: No
  Sender: Public
  Company Number: None

PATIENT
  Age: 54 Year
  Sex: Male

DRUGS (1)
  1. GADOBUTROL [Suspect]
     Active Substance: GADOBUTROL
     Indication: Scan with contrast
     Dosage: 7.00 ML ONCE INTRAVENOUS?
     Route: 042
     Dates: start: 20240907, end: 20240907

REACTIONS (1)
  - Vomiting [None]

NARRATIVE: CASE EVENT DATE: 20240907
